FAERS Safety Report 16074506 (Version 3)
Quarter: 2019Q2

REPORT INFORMATION
  Report Type: Spontaneous
  Country: US (occurrence: US)
  Receive Date: 20190314
  Receipt Date: 20190515
  Transmission Date: 20190711
  Serious: No
  Sender: FDA-Public Use
  Company Number: US-ACTELION-A-US2019-186903

PATIENT
  Sex: Female

DRUGS (3)
  1. SILDENAFIL. [Concomitant]
     Active Substance: SILDENAFIL
     Dosage: 3 MG/KG, QD
  2. DIGOXIN. [Concomitant]
     Active Substance: DIGOXIN
     Dosage: 35 MG
  3. TRACLEER [Suspect]
     Active Substance: BOSENTAN
     Indication: PULMONARY HYPERTENSION
     Dosage: 8 MG, Q12HRS
     Route: 048
     Dates: start: 20190211

REACTIONS (2)
  - No adverse event [Unknown]
  - Product use issue [Unknown]
